FAERS Safety Report 6696735-0 (Version None)
Quarter: 2010Q2

REPORT INFORMATION
  Report Type: 
  Country: None (occurrence: None)
  Receive Date: 20100426
  Receipt Date: 20100420
  Transmission Date: 20101027
  Serious: Yes (Hospitalization, Disabling, Other)
  Sender: FDA-Public Use
  Company Number: US-WYE-H03795208

PATIENT
  Sex: Female

DRUGS (4)
  1. PREMARIN [Suspect]
  2. ESTRADIOL [Suspect]
  3. MEDROXYPROGESTERONE ACETATE [Suspect]
  4. PREMPRO [Suspect]

REACTIONS (3)
  - ATRIAL FIBRILLATION [None]
  - PULMONARY EMBOLISM [None]
  - THROMBOSIS [None]
